FAERS Safety Report 6875633-3 (Version None)
Quarter: 2010Q3

REPORT INFORMATION
  Report Type: 
  Country: None (occurrence: None)
  Receive Date: 20100727
  Receipt Date: 20071004
  Transmission Date: 20110219
  Serious: Yes (Hospitalization, Disabling, Other)
  Sender: FDA-Public Use
  Company Number: US-PFIZER INC-2006113610

PATIENT
  Sex: Female
  Weight: 83.9 kg

DRUGS (11)
  1. CELEBREX [Suspect]
     Indication: PAIN
     Route: 048
     Dates: start: 20010901, end: 20020621
  2. VIOXX [Suspect]
     Route: 048
     Dates: start: 20010901, end: 20020621
  3. ENALAPRIL MALEATE [Concomitant]
     Dates: start: 20020916
  4. LOTREL [Concomitant]
     Dates: start: 19990830
  5. NORVASC [Concomitant]
     Dates: start: 19990818
  6. CLONIDINE [Concomitant]
     Dates: start: 20020625
  7. MINITRAN [Concomitant]
     Dates: start: 20020806
  8. IBUPROFEN TABLETS [Concomitant]
     Dates: start: 20010620
  9. METHYLPREDNISOLONE [Concomitant]
     Dates: start: 20010103
  10. OXYCODONE [Concomitant]
     Dates: start: 20030308
  11. FOLIC ACID [Concomitant]
     Dates: start: 20000615

REACTIONS (3)
  - CARDIAC FAILURE CONGESTIVE [None]
  - CEREBROVASCULAR ACCIDENT [None]
  - MYOCARDIAL INFARCTION [None]
